FAERS Safety Report 25133336 (Version 1)
Quarter: 2025Q1

REPORT INFORMATION
  Report Type: Spontaneous
  Country: US (occurrence: US)
  Receive Date: 20250328
  Receipt Date: 20250328
  Transmission Date: 20250409
  Serious: No
  Sender: GILEAD
  Company Number: US-GILEAD-2025-0708781

PATIENT
  Age: 41 Year
  Sex: Female

DRUGS (1)
  1. LIVDELZI [Suspect]
     Active Substance: SELADELPAR LYSINE
     Indication: Primary biliary cholangitis
     Route: 065
     Dates: start: 20250119, end: 20250311

REACTIONS (3)
  - Dizziness [Unknown]
  - Fatigue [Unknown]
  - Vision blurred [Recovered/Resolved]
